FAERS Safety Report 6725883-1 (Version None)
Quarter: 2010Q2

REPORT INFORMATION
  Report Type: 
  Country: None (occurrence: None)
  Receive Date: 20100514
  Receipt Date: 20100513
  Transmission Date: 20101027
  Serious: Yes (Hospitalization, Other)
  Sender: FDA-Public Use
  Company Number: PHEH2006US03757

PATIENT
  Sex: Female
  Weight: 68.027 kg

DRUGS (16)
  1. ESTRADERM [Suspect]
     Indication: MENOPAUSE
     Route: 062
     Dates: start: 19940101, end: 19950101
  2. PROVERA [Suspect]
     Indication: MENOPAUSE
     Dosage: 2.5 MG, UNK
     Route: 048
     Dates: start: 19940101, end: 19980101
  3. CLIMARA [Suspect]
     Indication: MENOPAUSE
     Dates: start: 19950101, end: 19980101
  4. PREMPRO [Suspect]
     Indication: MENOPAUSE
     Dosage: 0.625 MG/25 MG
     Dates: start: 19980101, end: 20020101
  5. SYNTHROID [Concomitant]
     Indication: HYPOTHYROIDISM
     Dosage: 112 UG, QD
     Route: 048
     Dates: start: 19820101
  6. MORVAN [Concomitant]
     Dates: start: 19930101, end: 20020101
  7. ASPIRIN [Concomitant]
     Indication: ANTICOAGULANT THERAPY
     Dates: start: 19930101
  8. LEVOXYL [Concomitant]
     Dosage: 0.1 MG, UNK
  9. UNIVASC [Concomitant]
     Dosage: 7.5 MG, UNK
  10. WELLBUTRIN [Concomitant]
  11. WELLBUTRIN SR [Concomitant]
     Dosage: 150 MG, UNK
     Route: 048
  12. FLONASE [Concomitant]
     Dosage: UNK, PRN
  13. ALLEGRA [Concomitant]
     Dosage: 60 MG, PRN
  14. COMBIVENT /JOR/ [Concomitant]
     Dosage: UNK, PRN
  15. SKELAXIN [Concomitant]
     Dosage: UNK
  16. PREMARIN [Concomitant]
     Dosage: 0.625 / QD

REACTIONS (51)
  - ANXIETY [None]
  - APPENDICECTOMY [None]
  - APPENDICITIS [None]
  - BIOPSY BREAST ABNORMAL [None]
  - BLOOD CHOLESTEROL INCREASED [None]
  - BREAST CANCER [None]
  - BREAST CYST [None]
  - BREAST MASS [None]
  - BRONCHOALVEOLAR LAVAGE ABNORMAL [None]
  - CATARACT [None]
  - CATARACT OPERATION [None]
  - DEFORMITY [None]
  - DIAPHRAGMATIC HERNIA [None]
  - ENDOCERVICAL CURETTAGE [None]
  - ENDOMETRIAL DISORDER [None]
  - FLANK PAIN [None]
  - GENETIC COUNSELLING [None]
  - HAEMATURIA [None]
  - HEPATIC CYST [None]
  - HERPES ZOSTER [None]
  - HYSTEROSCOPY [None]
  - IMPAIRED HEALING [None]
  - INJURY [None]
  - LOBAR PNEUMONIA [None]
  - MAMMOGRAM ABNORMAL [None]
  - MODIFIED RADICAL MASTECTOMY [None]
  - MUSCLE DISORDER [None]
  - MUSCULOSKELETAL CHEST PAIN [None]
  - NAUSEA [None]
  - NEPHROLITHIASIS [None]
  - OESTROGEN RECEPTOR ASSAY POSITIVE [None]
  - OSTEOARTHRITIS [None]
  - PAIN [None]
  - PAIN IN EXTREMITY [None]
  - POSTMENOPAUSAL HAEMORRHAGE [None]
  - PROGESTERONE RECEPTOR ASSAY POSITIVE [None]
  - PSYCHOMOTOR HYPERACTIVITY [None]
  - PYELONEPHRITIS [None]
  - RADIOTHERAPY [None]
  - RENAL CYST [None]
  - SCLERAL DISORDER [None]
  - SURGICAL PROCEDURE REPEATED [None]
  - TENDON SHEATH LESION EXCISION [None]
  - TRACHEOBRONCHITIS [None]
  - URINARY TRACT INFECTION [None]
  - UTERINE DILATION AND CURETTAGE [None]
  - UTERINE LEIOMYOMA [None]
  - UTERINE POLYP [None]
  - VAGINAL HAEMORRHAGE [None]
  - VISUAL ACUITY REDUCED [None]
  - VOMITING [None]
